FAERS Safety Report 19168709 (Version 4)
Quarter: 2021Q2

REPORT INFORMATION
  Report Type: Report from Study
  Country: DE (occurrence: DE)
  Receive Date: 20210422
  Receipt Date: 20210526
  Transmission Date: 20210717
  Serious: Yes (Hospitalization)
  Sender: FDA-Public Use
  Company Number: DE-CELGENEUS-DEU-20210403549

PATIENT
  Age: 69 Year
  Sex: Female
  Weight: 87 kg

DRUGS (13)
  1. CLEXANE [Concomitant]
     Active Substance: ENOXAPARIN SODIUM
     Indication: CHEMOTHERAPY
     Dosage: 40 MILLIGRAM
     Route: 058
     Dates: start: 20190429, end: 20210423
  2. RITUXIMAB. [Suspect]
     Active Substance: RITUXIMAB
     Indication: FOLLICULAR LYMPHOMA
     Dosage: 750 MILLIGRAM
     Route: 041
     Dates: start: 20190429, end: 20190526
  3. OMEPRAZOL [Concomitant]
     Active Substance: OMEPRAZOLE
     Indication: CHEMOTHERAPY
     Dosage: 20 MILLIGRAM
     Route: 048
     Dates: start: 201904, end: 2021
  4. METOCLOPRAMID [Concomitant]
     Active Substance: METOCLOPRAMIDE
     Indication: CHEMOTHERAPY
     Route: 048
     Dates: start: 20190429, end: 20210423
  5. PARACETAMOL [Concomitant]
     Active Substance: ACETAMINOPHEN
     Indication: CHEMOTHERAPY SIDE EFFECT PROPHYLAXIS
     Dosage: 500 MG (CYCLE 1 DAY 1, 8, 15, 22 AND CYCLE 3, 5, 7, 9, 11, 13, 15, 17, 21, 23, 25, 27, 29 DAY 1 PRIO
     Route: 048
     Dates: start: 20190429, end: 20210318
  6. CEFAVIT D3 [Concomitant]
     Indication: VITAMIN D DEFICIENCY
     Dosage: 1000 IE
     Route: 048
     Dates: start: 20190318
  7. CLARYTHROMYCIN [Concomitant]
     Active Substance: CLARITHROMYCIN
     Indication: SINUSITIS
     Dosage: 500 MILLIGRAM
     Route: 048
     Dates: start: 20210217, end: 20210317
  8. CC?5013 [Suspect]
     Active Substance: LENALIDOMIDE
     Indication: FOLLICULAR LYMPHOMA
     Route: 048
  9. RANITIDIN [Concomitant]
     Active Substance: RANITIDINE HYDROCHLORIDE
     Indication: CHEMOTHERAPY
     Dosage: 50 MG (CYCLE 1 DAY 1, 8, 15, 22 AND CYCLE 3, 5, 7, 9, 11 DAY 1)
     Route: 041
     Dates: start: 20190429, end: 20210318
  10. RITUXIMAB. [Suspect]
     Active Substance: RITUXIMAB
     Dosage: 750 MILLIGRAM
     Route: 041
     Dates: start: 20210318
  11. PARACETAMOL [Concomitant]
     Active Substance: ACETAMINOPHEN
     Indication: POSTOPERATIVE ANALGESIA
     Dosage: 1500 MILLIGRAM
     Route: 048
     Dates: start: 20210410, end: 20210419
  12. PREDNISOLON [Concomitant]
     Active Substance: PREDNISOLONE
     Indication: CHEMOTHERAPY
     Dosage: 50 MG (CYCLE 1 DAY 1, 8, 15, 22 AND CYCLE 3, 5, 7, 9, 11 DAY 1)
     Route: 041
     Dates: start: 20190429, end: 20210318
  13. CLARYTHROMYCIN [Concomitant]
     Active Substance: CLARITHROMYCIN
     Dosage: 250 MILLIGRAM
     Route: 048
     Dates: start: 20210318, end: 20210414

REACTIONS (1)
  - Lower limb fracture [Recovered/Resolved]

NARRATIVE: CASE EVENT DATE: 20210410
